FAERS Safety Report 25723381 (Version 5)
Quarter: 2025Q4

REPORT INFORMATION
  Report Type: Spontaneous
  Country: PA (occurrence: PA)
  Receive Date: 20250825
  Receipt Date: 20251013
  Transmission Date: 20260118
  Serious: No
  Sender: PFIZER
  Company Number: PA-PFIZER INC-PV202500101589

PATIENT
  Age: 12 Year
  Sex: Female

DRUGS (1)
  1. GENOTROPIN [Suspect]
     Active Substance: SOMATROPIN
     Dosage: 1.0 MG, ONCE, IN THE EVENINGS

REACTIONS (3)
  - Device defective [Unknown]
  - Device use error [Unknown]
  - Drug dose omission by device [Unknown]
